FAERS Safety Report 4693465-1 (Version None)
Quarter: 2005Q2

REPORT INFORMATION
  Report Type: 
  Country: None (occurrence: None)
  Receive Date: 20050615
  Receipt Date: 20050602
  Transmission Date: 20051028
  Serious: Yes (Death, Other)
  Sender: FDA-Public Use
  Company Number: 2005075978

PATIENT
  Age: 56 Year
  Sex: Female

DRUGS (6)
  1. GEODON [Suspect]
     Indication: MAJOR DEPRESSION
     Dates: start: 20041213, end: 20050426
  2. PROVIGIL [Concomitant]
  3. ALBUTEROL [Concomitant]
  4. LEXAPRO [Concomitant]
  5. XANAX [Concomitant]
  6. ANTIHISTAMINES (ANTIHISTAMINES) [Concomitant]

REACTIONS (3)
  - FALL [None]
  - MYOCARDIAL INFARCTION [None]
  - SOMNOLENCE [None]
